APPROVED DRUG PRODUCT: ISOCLOR
Active Ingredient: CHLORPHENIRAMINE MALEATE; PSEUDOEPHEDRINE HYDROCHLORIDE
Strength: 8MG;120MG
Dosage Form/Route: CAPSULE, EXTENDED RELEASE;ORAL
Application: N018747 | Product #001
Applicant: FISONS CORP
Approved: Mar 6, 1986 | RLD: No | RS: No | Type: DISCN